FAERS Safety Report 6282810-1 (Version None)
Quarter: 2009Q3

REPORT INFORMATION
  Report Type: 
  Country: None (occurrence: None)
  Receive Date: 20090724
  Receipt Date: 20090715
  Transmission Date: 20100115
  Serious: Yes (Hospitalization)
  Sender: FDA-Public Use
  Company Number: FR-PFIZER INC-2009240351

PATIENT
  Age: 80 Year

DRUGS (13)
  1. ALDACTONE [Suspect]
     Dosage: 50 MG, 1X/DAY
     Route: 048
     Dates: end: 20090530
  2. ARICEPT [Suspect]
     Dosage: UNK
     Route: 048
     Dates: start: 20071001, end: 20090530
  3. DOLIPRANE [Suspect]
     Dosage: 1000 MG, 3X/DAY
     Route: 048
     Dates: start: 20090509, end: 20090530
  4. CORDARONE [Suspect]
     Dosage: 200 MG, 1X/DAY
     Route: 048
     Dates: start: 20060101, end: 20090530
  5. ATACAND [Suspect]
     Dosage: 8 MG, 1X/DAY
     Route: 048
     Dates: end: 20090530
  6. BRISTOPEN [Concomitant]
     Indication: OSTEITIS
     Dosage: 500 MG, 4X/DAY
     Route: 048
     Dates: start: 20060101
  7. PYOSTACINE [Concomitant]
     Dosage: 500 MG, 4X/DAY
     Route: 048
     Dates: start: 20060101
  8. SELOKEN [Concomitant]
     Dosage: 100 MG, 1X/DAY
     Route: 048
     Dates: start: 20081201
  9. TOPALGIC [Concomitant]
     Dosage: 100 MG, 2X/DAY
     Dates: start: 20090509
  10. PREVISCAN [Concomitant]
     Dosage: UNK
     Route: 048
     Dates: start: 20081201, end: 20090530
  11. PREVISCAN [Concomitant]
     Dosage: UNK
     Dates: start: 20090605
  12. ACTRAPID [Concomitant]
     Dosage: UNK
  13. LANTUS [Concomitant]
     Dosage: UNK

REACTIONS (1)
  - CYTOLYTIC HEPATITIS [None]
